FAERS Safety Report 13458149 (Version 1)
Quarter: 2017Q2

REPORT INFORMATION
  Report Type: Spontaneous
  Country: US (occurrence: US)
  Receive Date: 20170419
  Receipt Date: 20170419
  Transmission Date: 20170830
  Serious: Yes (Other)
  Sender: FDA-Public Use
  Company Number: US-SA-2017SA067201

PATIENT
  Age: 4 Year
  Sex: Female

DRUGS (1)
  1. XYZAL ALLERGY 24HR [Suspect]
     Active Substance: LEVOCETIRIZINE DIHYDROCHLORIDE
     Dosage: 2 DOSES OF 5 DROPS EACH PER DAY
     Route: 048

REACTIONS (2)
  - Drug administration error [Unknown]
  - Blood urine present [Recovering/Resolving]
